FAERS Safety Report 7709596-5 (Version None)
Quarter: 2011Q3

REPORT INFORMATION
  Report Type: 
  Country: None (occurrence: None)
  Receive Date: 20110825
  Receipt Date: 20110810
  Transmission Date: 20111222
  Serious: Yes (Hospitalization)
  Sender: FDA-Public Use
  Company Number: US-GLAXOSMITHKLINE-A0834599A

PATIENT
  Age: 50 Year
  Sex: Male
  Weight: 151.8 kg

DRUGS (12)
  1. VICODIN [Concomitant]
  2. NIFEDIPINE [Concomitant]
  3. AVANDIA [Suspect]
     Indication: DIABETES MELLITUS
     Dosage: 4MG PER DAY
     Route: 048
     Dates: end: 20100101
  4. ATENOLOL [Concomitant]
  5. PRILOSEC [Concomitant]
  6. AMBIEN [Concomitant]
  7. SOMA [Concomitant]
  8. SIMAVASTATIN [Concomitant]
  9. LISINOPRIL [Concomitant]
  10. CYMBALTA [Concomitant]
  11. AVANDAMET [Suspect]
     Indication: DIABETES MELLITUS
     Route: 048
  12. GABAPENTIN [Concomitant]

REACTIONS (2)
  - MYOCARDIAL INFARCTION [None]
  - CORONARY ARTERY DISEASE [None]
